FAERS Safety Report 9092006 (Version 1)
Quarter: 2013Q1

REPORT INFORMATION
  Report Type: Report from Study
  Country: US (occurrence: US)
  Receive Date: 20130131
  Receipt Date: 20130131
  Transmission Date: 20140127
  Serious: No
  Sender: FDA-Public Use
  Company Number: US-ABBOTT-12P-163-1003717-00

PATIENT
  Sex: Female
  Weight: 34.96 kg

DRUGS (9)
  1. HUMIRA [Suspect]
     Indication: COLITIS ULCERATIVE
     Dosage: ONE TIME DOSE
     Route: 058
     Dates: start: 20121024, end: 20121024
  2. HUMIRA [Suspect]
     Indication: CROHN^S DISEASE
  3. PREDNISONE [Suspect]
     Indication: CROHN^S DISEASE
     Dates: start: 201209
  4. PREDNISONE [Suspect]
     Indication: COLITIS ULCERATIVE
  5. CANASA [Concomitant]
     Indication: PRODUCT USED FOR UNKNOWN INDICATION
  6. FOLIC ACID [Concomitant]
     Indication: PRODUCT USED FOR UNKNOWN INDICATION
  7. VITAMIN D [Concomitant]
     Indication: PRODUCT USED FOR UNKNOWN INDICATION
  8. MULTIPLE VITAMINS [Concomitant]
     Indication: PRODUCT USED FOR UNKNOWN INDICATION
  9. OMEGA 3 [Concomitant]
     Indication: PRODUCT USED FOR UNKNOWN INDICATION

REACTIONS (4)
  - Headache [Not Recovered/Not Resolved]
  - Alopecia [Not Recovered/Not Resolved]
  - Injection site pain [Unknown]
  - Acne [Not Recovered/Not Resolved]
